FAERS Safety Report 6985100-4 (Version None)
Quarter: 2010Q3

REPORT INFORMATION
  Report Type: 
  Country: None (occurrence: None)
  Receive Date: 20100915
  Receipt Date: 20100909
  Transmission Date: 20110219
  Serious: Yes (Death, Hospitalization, Other)
  Sender: FDA-Public Use
  Company Number: PHHY2010MX37130

PATIENT
  Sex: Female

DRUGS (1)
  1. DIOVAN HCT [Suspect]
     Indication: HYPERTENSION
     Dosage: 1 TABLET (160/12.5MG ) PER DAY
     Dates: start: 20080601, end: 20100521

REACTIONS (7)
  - CARDIO-RESPIRATORY ARREST [None]
  - FAMILY STRESS [None]
  - HYPERGLYCAEMIA [None]
  - HYPOTENSION [None]
  - INADEQUATE DIET [None]
  - MULTI-ORGAN FAILURE [None]
  - MYOCARDIAL INFARCTION [None]
